FAERS Safety Report 7399675-7 (Version None)
Quarter: 2011Q2

REPORT INFORMATION
  Report Type: 
  Country: None (occurrence: None)
  Receive Date: 20110407
  Receipt Date: 20110331
  Transmission Date: 20111010
  Serious: Yes (Other)
  Sender: FDA-Public Use
  Company Number: US-US-EMD SERONO, INC.-7023088

PATIENT
  Sex: Female
  Weight: 74 kg

DRUGS (9)
  1. LISINOPRIL [Concomitant]
     Indication: HYPERTENSION
     Dates: start: 20090928
  2. FLORINAL [Concomitant]
     Indication: MIGRAINE
     Dates: start: 20071011
  3. AMPHETAMINE AND DEXTROAMPHETAMINE SALTS [Concomitant]
     Indication: MULTIPLE SCLEROSIS
  4. ALEVE [Concomitant]
     Indication: PREMEDICATION
  5. ALPRAZOLAM [Concomitant]
     Indication: INSOMNIA
  6. AMPHETAMINE AND DEXTROAMPHETAMINE SALTS [Concomitant]
     Indication: FATIGUE
     Dates: start: 20070905
  7. REBIF [Suspect]
     Indication: MULTIPLE SCLEROSIS
     Route: 058
     Dates: start: 20100527, end: 20100901
  8. ALPRAZOLAM [Concomitant]
     Indication: PAIN
     Dates: start: 20090928
  9. REBIF [Suspect]
     Route: 058
     Dates: start: 20101025

REACTIONS (2)
  - BLOOD TRIGLYCERIDES INCREASED [None]
  - INJECTION SITE ERYTHEMA [None]
